FAERS Safety Report 10527977 (Version 2)
Quarter: 2014Q4

REPORT INFORMATION
  Report Type: Report from Study
  Country: US (occurrence: US)
  Receive Date: 20141020
  Receipt Date: 20141020
  Transmission Date: 20150528
  Serious: Yes (Hospitalization, Other)
  Sender: FDA-Public Use
  Company Number: US-MYLANLABS-2014SP005603

PATIENT

DRUGS (14)
  1. OXALIPLATIN. [Suspect]
     Active Substance: OXALIPLATIN
     Indication: COLON CANCER
     Dosage: 202 MG, BIWEEKLY
     Route: 042
     Dates: start: 20140721
  2. IRINOTECAN [Suspect]
     Active Substance: IRINOTECAN
     Indication: COLON CANCER
     Dosage: 428 MG, BIWEEKLY
     Route: 042
     Dates: start: 20140819
  3. FOLINIC ACID [Suspect]
     Active Substance: LEUCOVORIN
     Indication: PRODUCT USED FOR UNKNOWN INDICATION
     Dosage: 202 MG, BIWEEKLY
     Route: 042
     Dates: start: 20140721
  4. PEPCID AC [Concomitant]
     Active Substance: FAMOTIDINE
     Dates: start: 20140715
  5. PROCHLORPERAZINE. [Concomitant]
     Active Substance: PROCHLORPERAZINE
     Dosage: 30 MG, PRN
     Dates: start: 20140722
  6. DOXYCYCLINE. [Concomitant]
     Active Substance: DOXYCYCLINE
     Dosage: 200 MG, UNK
     Dates: start: 20140819
  7. CALCIUM FOLINATE [Suspect]
     Active Substance: LEUCOVORIN CALCIUM
     Indication: COLON CANCER
     Dosage: 400 MG/M2, BIWEEKLY
     Route: 042
     Dates: start: 20140721
  8. IBUPROFEN                          /00109205/ [Concomitant]
     Active Substance: IBUPROFEN
     Dosage: 400 MG, PRN
     Dates: start: 20140729
  9. BEVACIZUMAB [Suspect]
     Active Substance: BEVACIZUMAB
     Indication: COLON CANCER
     Dosage: 538 MG, BIWEEKLY
     Route: 042
     Dates: start: 20140721
  10. ONDANSETRON [Concomitant]
     Active Substance: ONDANSETRON
     Dosage: 24 MG, PRN
     Dates: start: 20140722
  11. TRAMADOL [Concomitant]
     Active Substance: TRAMADOL
     Dosage: 50 MG, PRN
     Dates: start: 20140807
  12. FLUOROURACIL. [Suspect]
     Active Substance: FLUOROURACIL
     Indication: COLON CANCER
     Dosage: 428 MG, BIWEEKLY
     Route: 042
     Dates: start: 20140819
  13. FERAHEME [Concomitant]
     Active Substance: FERUMOXYTOL NON-STOICHIOMETRIC MAGNETITE
     Dosage: 510 MG, UNK
     Route: 042
     Dates: start: 20140808
  14. NAPROXEN SODIUM. [Concomitant]
     Active Substance: NAPROXEN SODIUM
     Dosage: 220 MG, PRN
     Dates: start: 2006

REACTIONS (2)
  - Deep vein thrombosis [Recovered/Resolved with Sequelae]
  - Pulmonary embolism [Not Recovered/Not Resolved]

NARRATIVE: CASE EVENT DATE: 20140910
